FAERS Safety Report 13266418 (Version 1)
Quarter: 2017Q1

REPORT INFORMATION
  Report Type: Report from Study
  Country: None (occurrence: NL)
  Receive Date: 20170223
  Receipt Date: 20170223
  Transmission Date: 20170428
  Serious: Yes (Death)
  Sender: FDA-Public Use
  Company Number: NL-ABBVIE-17P-114-1833549-00

PATIENT
  Age: 1 Year
  Sex: Male

DRUGS (7)
  1. SYNAGIS [Suspect]
     Active Substance: PALIVIZUMAB
     Route: 065
     Dates: start: 20161228, end: 20161228
  2. SYNAGIS [Suspect]
     Active Substance: PALIVIZUMAB
     Indication: ANTIVIRAL PROPHYLAXIS
     Route: 065
     Dates: start: 20160905, end: 20160905
  3. SYNAGIS [Suspect]
     Active Substance: PALIVIZUMAB
     Route: 065
     Dates: start: 20161130, end: 20161130
  4. SPIRONOLACTONE. [Concomitant]
     Active Substance: SPIRONOLACTONE
     Indication: CARDIAC FAILURE
     Route: 048
  5. SYNAGIS [Suspect]
     Active Substance: PALIVIZUMAB
     Indication: HEART DISEASE CONGENITAL
     Route: 065
     Dates: start: 20161005, end: 20161005
  6. FUROSEMIDE. [Concomitant]
     Active Substance: FUROSEMIDE
     Indication: CARDIAC FAILURE
     Route: 048
  7. SYNAGIS [Suspect]
     Active Substance: PALIVIZUMAB
     Route: 065
     Dates: start: 20161102, end: 20161102

REACTIONS (5)
  - Pneumonia [Fatal]
  - Rhinovirus infection [Fatal]
  - Cardiac failure [Fatal]
  - Tracheitis [Fatal]
  - Respiratory failure [Fatal]

NARRATIVE: CASE EVENT DATE: 20161231
